FAERS Safety Report 6049395-6 (Version None)
Quarter: 2009Q1

REPORT INFORMATION
  Report Type: 
  Country: None (occurrence: None)
  Receive Date: 20090123
  Receipt Date: 20090116
  Transmission Date: 20090719
  Serious: Yes (Death, Life-Threatening, Hospitalization)
  Sender: FDA-Public Use
  Company Number: DE-GENENTECH-273236

PATIENT
  Sex: Female

DRUGS (4)
  1. AVASTIN [Suspect]
     Indication: GLIOBLASTOMA
     Dosage: 700 MG, UNK
     Route: 042
  2. DEXAMETHASONE [Suspect]
     Indication: GLIOBLASTOMA
     Dosage: 12 MG, QD
     Route: 048
  3. DICLOFENAC [Suspect]
     Indication: GLIOBLASTOMA
     Dosage: 70 MG, QD
     Route: 048
  4. IRINOTECAN HCL [Concomitant]
     Indication: GLIOBLASTOMA
     Dosage: 200 MG, UNK
     Route: 042

REACTIONS (3)
  - LARGE INTESTINAL HAEMORRHAGE [None]
  - LARGE INTESTINE PERFORATION [None]
  - PERITONITIS [None]
